FAERS Safety Report 4891846-4 (Version None)
Quarter: 2006Q1

REPORT INFORMATION
  Report Type: 
  Country: None (occurrence: None)
  Receive Date: 20060123
  Receipt Date: 20060105
  Transmission Date: 20060701
  Serious: Yes (Hospitalization)
  Sender: FDA-Public Use
  Company Number: 060001M06DNK

PATIENT
  Age: 33 Year
  Sex: Female

DRUGS (1)
  1. SEROPHENE [Suspect]
     Indication: OVARIAN DISORDER

REACTIONS (1)
  - CEREBROVASCULAR ACCIDENT [None]
